FAERS Safety Report 12865069 (Version 1)
Quarter: 2016Q4

REPORT INFORMATION
  Report Type: Spontaneous
  Country: DE (occurrence: DE)
  Receive Date: 20161020
  Receipt Date: 20161020
  Transmission Date: 20170207
  Serious: Yes (Hospitalization)
  Sender: FDA-Public Use
  Company Number: DE-ROCHE-1843228

PATIENT
  Age: 48 Year
  Sex: Female

DRUGS (1)
  1. PEG-INTERFERON ALFA 2A [Suspect]
     Active Substance: PEGINTERFERON ALFA-2A
     Indication: MALIGNANT MELANOMA
     Dosage: DOSE: 3 MILLION INTERNATIONAL UNITS.
     Route: 058

REACTIONS (1)
  - Keratosis follicular [Recovering/Resolving]
